FAERS Safety Report 5752188-8 (Version None)
Quarter: 2008Q2

REPORT INFORMATION
  Report Type: 
  Country: None (occurrence: None)
  Receive Date: 20080529
  Receipt Date: 20070720
  Transmission Date: 20081010
  Serious: No
  Sender: FDA-Public Use
  Company Number: US-BAUSCH-2007BL002510

PATIENT
  Age: 73 Year
  Sex: Female

DRUGS (4)
  1. DIPIVEFRIN HYDROCHLORIDE [Suspect]
     Route: 047
     Dates: start: 20070718, end: 20070720
  2. XALATAN /SWE/ [Concomitant]
     Indication: GLAUCOMA
     Route: 047
  3. NIFEDICAL [Concomitant]
     Indication: HYPERTENSION
  4. VITAMINS [Concomitant]
     Indication: VITAMIN SUPPLEMENTATION

REACTIONS (4)
  - EYELID OEDEMA [None]
  - MEDICATION ERROR [None]
  - OVERDOSE [None]
  - VISION BLURRED [None]
